FAERS Safety Report 21369589 (Version 1)
Quarter: 2022Q3

REPORT INFORMATION
  Report Type: Spontaneous
  Country: US (occurrence: US)
  Receive Date: 20220923
  Receipt Date: 20220923
  Transmission Date: 20221026
  Serious: Yes (Other)
  Sender: FDA-Public Use
  Company Number: US-PFIZER INC-202201179604

PATIENT
  Age: 82 Year
  Sex: Female
  Weight: 66.68 kg

DRUGS (1)
  1. IBRANCE [Suspect]
     Active Substance: PALBOCICLIB
     Indication: Breast cancer metastatic
     Dosage: 100 MG, CYCLIC (ONCE A DAY FOR 21 DAYS THEN 7 DAYS OFF)
     Dates: start: 202202, end: 20220907

REACTIONS (3)
  - Cerebrovascular accident [Recovered/Resolved]
  - Gastroenteritis viral [Unknown]
  - Illness [Unknown]

NARRATIVE: CASE EVENT DATE: 20220720
